FAERS Safety Report 5407188-4 (Version None)
Quarter: 2007Q3

REPORT INFORMATION
  Report Type: 
  Country: None (occurrence: None)
  Receive Date: 20070803
  Receipt Date: 20070723
  Transmission Date: 20080115
  Serious: Yes (Hospitalization)
  Sender: FDA-Public Use
  Company Number: 2007BI015646

PATIENT
  Age: 49 Year
  Sex: Female
  Weight: 54.4316 kg

DRUGS (2)
  1. NATALIZUMAB [Suspect]
     Indication: DRUG USE FOR UNKNOWN INDICATION
     Dosage: 300 MG; QM; IV
     Route: 042
     Dates: start: 20060901, end: 20070101
  2. NATALIZUMAB [Suspect]
     Indication: DRUG USE FOR UNKNOWN INDICATION
     Dosage: 300 MG; QM; IV
     Route: 042
     Dates: start: 20070401, end: 20070501

REACTIONS (4)
  - ASTHENIA [None]
  - FALL [None]
  - FATIGUE [None]
  - THROMBOSIS [None]
